FAERS Safety Report 20501428 (Version 1)
Quarter: 2022Q1

REPORT INFORMATION
  Report Type: Spontaneous
  Country: FR (occurrence: FR)
  Receive Date: 20220222
  Receipt Date: 20220222
  Transmission Date: 20220423
  Serious: Yes (Other)
  Sender: FDA-Public Use
  Company Number: None

PATIENT
  Age: 22 Year
  Sex: Female

DRUGS (8)
  1. PREGABALIN [Suspect]
     Active Substance: PREGABALIN
     Dosage: 50MG AT NOON, 50MG IN THE EVENING
     Route: 048
     Dates: start: 2021
  2. LITHIUM [Suspect]
     Active Substance: LITHIUM
     Dosage: 250MG IN THE EVENING
     Route: 048
     Dates: start: 2021
  3. ARIPIPRAZOLE [Suspect]
     Active Substance: ARIPIPRAZOLE
     Dosage: 2 X 10MG ONE INTAKE IN THE MORNING
     Route: 048
     Dates: start: 2021
  4. BUSPIRONE HYDROCHLORIDE [Suspect]
     Active Substance: BUSPIRONE HYDROCHLORIDE
     Dosage: 10MG IN THE MORNING, 10MG AT NON, 20MG IN THE EVENING
     Route: 048
     Dates: start: 2021
  5. PIPAMPERONE [Suspect]
     Active Substance: PIPAMPERONE
     Dosage: 20MG IN THE MORNING, 20MG AT NOON, 40MG IN THE EVENING
     Route: 048
     Dates: start: 2021
  6. COCAINE [Suspect]
     Active Substance: COCAINE
     Dosage: UNK
     Dates: start: 20210908, end: 20210908
  7. TRIMEPRAZINE [Suspect]
     Active Substance: TRIMEPRAZINE
     Dosage: 20 MG, 1X/DAY
     Route: 048
     Dates: start: 2021
  8. CLORAZEPATE DIPOTASSIUM [Suspect]
     Active Substance: CLORAZEPATE DIPOTASSIUM
     Dosage: 10MG IN THE MORNING , 10MG AT NOON, 20MG IN THE EVENING, 10MG BEFORE BEDTIME
     Route: 048
     Dates: start: 2021

REACTIONS (3)
  - Drug abuse [Not Recovered/Not Resolved]
  - Depressed level of consciousness [Recovered/Resolved]
  - Anxiety [Recovered/Resolved]

NARRATIVE: CASE EVENT DATE: 20210908
